FAERS Safety Report 5197951-X (Version None)
Quarter: 2007Q1

REPORT INFORMATION
  Report Type: 
  Country: None (occurrence: None)
  Receive Date: 20070104
  Receipt Date: 20061227
  Transmission Date: 20070707
  Serious: Yes (Hospitalization)
  Sender: FDA-Public Use
  Company Number: DE-JNJFOC-20061206672

PATIENT
  Age: 34 Year
  Sex: Male

DRUGS (3)
  1. REMICADE [Suspect]
     Indication: RHEUMATOID ARTHRITIS
     Route: 042
  2. METHOTREXATE [Suspect]
     Indication: RHEUMATOID ARTHRITIS
     Route: 065
  3. PREDNISOLONE [Concomitant]
     Route: 065

REACTIONS (5)
  - ANAEMIA [None]
  - GLUCOSE TOLERANCE IMPAIRED [None]
  - HERPES SIMPLEX [None]
  - HYPERCHOLESTEROLAEMIA [None]
  - RHEUMATOID ARTHRITIS [None]
